FAERS Safety Report 16254563 (Version 1)
Quarter: 2019Q2

REPORT INFORMATION
  Report Type: Spontaneous
  Country: US (occurrence: US)
  Receive Date: 20190430
  Receipt Date: 20190430
  Transmission Date: 20190711
  Serious: No
  Sender: FDA-Public Use
  Company Number: US-AMGEN-USASP2019065244

PATIENT
  Age: 59 Year
  Sex: Male

DRUGS (5)
  1. NPLATE [Suspect]
     Active Substance: ROMIPLOSTIM
     Indication: IMMUNE THROMBOCYTOPENIC PURPURA
     Dosage: 375 MICROGRAM
     Route: 065
     Dates: start: 201710
  2. NPLATE [Suspect]
     Active Substance: ROMIPLOSTIM
     Dosage: 900 MICROGRAM
     Route: 065
  3. NPLATE [Suspect]
     Active Substance: ROMIPLOSTIM
     Dosage: 810 MICROGRAM
     Route: 065
  4. NPLATE [Suspect]
     Active Substance: ROMIPLOSTIM
     Dosage: 890 UNK
     Route: 065
  5. NPLATE [Suspect]
     Active Substance: ROMIPLOSTIM
     Dosage: 880 UNK
     Route: 065

REACTIONS (1)
  - Therapeutic response decreased [Not Recovered/Not Resolved]
